FAERS Safety Report 15101547 (Version 1)
Quarter: 2018Q2

REPORT INFORMATION
  Report Type: Spontaneous
  Country: US (occurrence: US)
  Receive Date: 20180611
  Receipt Date: 20180611
  Transmission Date: 20180711
  Serious: Yes (Hospitalization)
  Sender: FDA-Public Use
  Company Number: None

PATIENT
  Age: 49 Year
  Sex: Female

DRUGS (1)
  1. AVONEX [Suspect]
     Active Substance: INTERFERON BETA-1A
     Indication: MULTIPLE SCLEROSIS
     Dosage: ?          OTHER DOSE:ONE PEN;?
     Route: 030
     Dates: start: 20170901

REACTIONS (3)
  - Thyroid mass [None]
  - Renal disorder [None]
  - Glucose tolerance impaired [None]

NARRATIVE: CASE EVENT DATE: 20180521
